FAERS Safety Report 25611854 (Version 1)
Quarter: 2025Q3

REPORT INFORMATION
  Report Type: Spontaneous
  Country: JP (occurrence: JP)
  Receive Date: 20250728
  Receipt Date: 20250728
  Transmission Date: 20251021
  Serious: Yes (Life-Threatening)
  Sender: ORGANON
  Company Number: JP-MEIJISEIKA-202504322_P_1

PATIENT
  Age: 24 Year
  Sex: Female

DRUGS (2)
  1. REFLEX [Suspect]
     Active Substance: MIRTAZAPINE
     Route: 048
  2. CHLORPROMAZINE HYDROCHLORIDE [Concomitant]
     Active Substance: CHLORPROMAZINE HYDROCHLORIDE
     Route: 048

REACTIONS (1)
  - Intentional overdose [Unknown]
